FAERS Safety Report 4978559-5 (Version None)
Quarter: 2006Q2

REPORT INFORMATION
  Report Type: 
  Country: None (occurrence: None)
  Receive Date: 20060414
  Receipt Date: 20060405
  Transmission Date: 20061013
  Serious: Yes (Hospitalization)
  Sender: FDA-Public Use
  Company Number: HQWYE719910APR06

PATIENT
  Age: 15 Year
  Sex: Male

DRUGS (1)
  1. ADVIL [Suspect]
     Dosage: 2 TABLETS X 1 , ORAL
     Route: 048
     Dates: start: 20030301, end: 20030301

REACTIONS (3)
  - LACRIMATION INCREASED [None]
  - STEVENS-JOHNSON SYNDROME [None]
  - SWOLLEN TONGUE [None]
